FAERS Safety Report 12528350 (Version 1)
Quarter: 2016Q3

REPORT INFORMATION
  Report Type: Spontaneous
  Country: BR (occurrence: BR)
  Receive Date: 20160705
  Receipt Date: 20160705
  Transmission Date: 20161109
  Serious: Yes (Other)
  Sender: FDA-Public Use
  Company Number: PHHY2016BR090726

PATIENT
  Sex: Female

DRUGS (2)
  1. DIAMICRON [Suspect]
     Active Substance: GLICLAZIDE
     Indication: DIABETES MELLITUS
     Dosage: 2 DF, QD
     Route: 048
  2. METFORMIN [Suspect]
     Active Substance: METFORMIN HYDROCHLORIDE
     Indication: DIABETES MELLITUS
     Dosage: 4 DF, QD
     Route: 048

REACTIONS (4)
  - Arthralgia [Unknown]
  - Blood growth hormone increased [Unknown]
  - Thyroid disorder [Unknown]
  - Acromegaly [Unknown]

NARRATIVE: CASE EVENT DATE: 1998
